FAERS Safety Report 9745571 (Version 1)
Quarter: 2013Q4

REPORT INFORMATION
  Report Type: Spontaneous
  Country: PL (occurrence: PL)
  Receive Date: 20131211
  Receipt Date: 20131211
  Transmission Date: 20140711
  Serious: Yes (Life-Threatening, Other)
  Sender: FDA-Public Use
  Company Number: PL-ROXANE LABORATORIES, INC.-2013-RO-01923RO

PATIENT
  Age: 30 Year
  Sex: Male

DRUGS (4)
  1. ALPRAZOLAM INTENSOL [ORAL SOLUTION (CONCENTRATE)] 1 MG/ML [Suspect]
  2. CLENBUTEROL [Suspect]
  3. OLANZAPINE [Suspect]
  4. ALCOHOL [Suspect]

REACTIONS (5)
  - Intentional overdose [Unknown]
  - Tachycardia [Recovered/Resolved]
  - Metabolic acidosis [Unknown]
  - Hypokalaemia [Recovered/Resolved]
  - Hypothermia [Unknown]
